FAERS Safety Report 19084833 (Version 1)
Quarter: 2021Q2

REPORT INFORMATION
  Report Type: Spontaneous
  Country: US (occurrence: US)
  Receive Date: 20210401
  Receipt Date: 20210401
  Transmission Date: 20210717
  Serious: Yes (Other)
  Sender: FDA-Public Use
  Company Number: US-AMNEAL PHARMACEUTICALS-2021-AMRX-01112

PATIENT

DRUGS (3)
  1. CAPECITABINE. [Suspect]
     Active Substance: CAPECITABINE
     Indication: COLORECTAL CANCER METASTATIC
     Dosage: 850 MILLIGRAM/SQ. METER, EVERY 3 WEEKS DAY 1?14
     Route: 048
  2. CATEQUENTINIB. [Suspect]
     Active Substance: CATEQUENTINIB
     Indication: COLORECTAL CANCER METASTATIC
     Dosage: 12 MILLIGRAM, EVERY 2WK ON/1 WEEK OFF
     Route: 048
  3. OXALIPLATIN. [Suspect]
     Active Substance: OXALIPLATIN
     Indication: COLORECTAL CANCER METASTATIC
     Dosage: 130 MILLIGRAM/SQ. METER, EVERY 3 WEEKS
     Route: 042

REACTIONS (1)
  - Intestinal obstruction [Unknown]
